FAERS Safety Report 5893466-1 (Version None)
Quarter: 2008Q3

REPORT INFORMATION
  Report Type: 
  Country: None (occurrence: None)
  Receive Date: 20080922
  Receipt Date: 20080922
  Transmission Date: 20090109
  Serious: Yes (Hospitalization)
  Sender: FDA-Public Use
  Company Number: None

PATIENT
  Sex: Female
  Weight: 95.5 kg

DRUGS (8)
  1. CARBOPLATIN [Suspect]
     Indication: OVARIAN CANCER
     Dosage: 575MGIVPB/60MINQ21DAYS
     Route: 042
     Dates: start: 20080918
  2. DASATINIB [Suspect]
     Indication: OVARIAN CANCER
     Dosage: 120MQ PO DAILY
     Route: 048
     Dates: start: 20080918
  3. DASATINIB [Suspect]
  4. PACLITAXEL [Suspect]
     Indication: OVARIAN CANCER
     Dosage: 350MGIVPB/3HRS Q21DAYS
     Route: 042
     Dates: start: 20080918
  5. DECADRON [Concomitant]
  6. ZANTAC [Concomitant]
  7. BENADRYL [Concomitant]
  8. ZOFRAN [Concomitant]

REACTIONS (1)
  - DRUG HYPERSENSITIVITY [None]
